FAERS Safety Report 7241726-4 (Version None)
Quarter: 2011Q1

REPORT INFORMATION
  Report Type: 
  Country: None (occurrence: None)
  Receive Date: 20110124
  Receipt Date: 20110119
  Transmission Date: 20110831
  Serious: Yes (Death, Hospitalization, Disabling, Other)
  Sender: FDA-Public Use
  Company Number: PHHY2011US00819

PATIENT
  Sex: Male
  Weight: 102 kg

DRUGS (17)
  1. TOPAMAX [Suspect]
     Dosage: 200 MG,
     Route: 048
     Dates: start: 20100530
  2. NORVASC [Concomitant]
     Dosage: 2.5 MG, UNK
  3. DITROPAN [Concomitant]
  4. AMLODIPINE [Concomitant]
     Dosage: 2.5 MG, DAILY
  5. CLOZARIL [Suspect]
     Dosage: 400 MG, UNK
     Dates: start: 20100530
  6. GEMFIBROZIL [Concomitant]
     Dosage: 500 MG, DAILY
  7. LITHIUM [Concomitant]
     Dosage: 600 UNK, BID
  8. LOPID [Concomitant]
  9. CARBAMAZEPINE [Concomitant]
     Dosage: 400 MG, BEDTIME
  10. LEVOTHYROXINE [Concomitant]
     Dosage: 75 MG, BID
  11. TEGRETOL [Concomitant]
     Dosage: 400 UNK, UNK
  12. PROZAC [Concomitant]
     Dosage: 20 MG, UNK
  13. FLUOXETINE [Concomitant]
     Dosage: 20 MG, DAILY
  14. BUSPIRONE [Concomitant]
     Dosage: 5 MG, TID
  15. BUSPAR [Concomitant]
  16. MELLARIL [Concomitant]
     Dosage: 25 MG, QD
  17. OXYBUTYNIN [Concomitant]
     Dosage: 5 MG, AT BEDTIME

REACTIONS (14)
  - CIRCULATORY COLLAPSE [None]
  - AGONAL RHYTHM [None]
  - BRAIN DEATH [None]
  - ACCIDENTAL EXPOSURE [None]
  - SKIN DISCOLOURATION [None]
  - SINUS TACHYCARDIA [None]
  - PULSE ABSENT [None]
  - CORONARY ARTERY OCCLUSION [None]
  - BRAIN INJURY [None]
  - DYSPNOEA [None]
  - MODERATE MENTAL RETARDATION [None]
  - ELECTROCARDIOGRAM ST SEGMENT DEPRESSION [None]
  - CARDIO-RESPIRATORY ARREST [None]
  - BRAIN OEDEMA [None]
